FAERS Safety Report 6148592-9 (Version None)
Quarter: 2009Q2

REPORT INFORMATION
  Report Type: 
  Country: None (occurrence: None)
  Receive Date: 20090408
  Receipt Date: 20090330
  Transmission Date: 20091009
  Serious: Yes (Hospitalization)
  Sender: FDA-Public Use
  Company Number: PHHY2009FR11664

PATIENT
  Sex: Male

DRUGS (4)
  1. ANAFRANIL [Suspect]
     Indication: DEPRESSION
     Dosage: 20 MG, QD
     Route: 048
     Dates: start: 20070101
  2. NISIS [Suspect]
     Dosage: 160 MG, QD
     Route: 048
     Dates: start: 20070101
  3. YOHIMBINE ^HOUDE^ [Suspect]
     Indication: DEPRESSION
     Dosage: UNK
     Dates: start: 20070101, end: 20080201
  4. DEPAMIDE [Suspect]
     Dosage: 300 MG, TID
     Route: 048

REACTIONS (5)
  - ABDOMINAL PAIN [None]
  - FATIGUE [None]
  - NEOPLASM [None]
  - RETROPERITONEAL FIBROSIS [None]
  - WEIGHT DECREASED [None]
